FAERS Safety Report 18330219 (Version 1)
Quarter: 2020Q3

REPORT INFORMATION
  Report Type: Report from Study
  Country: CN (occurrence: CN)
  Receive Date: 20200930
  Receipt Date: 20200930
  Transmission Date: 20201103
  Serious: Yes (Other)
  Sender: FDA-Public Use
  Company Number: NVSC2020CN263321

PATIENT
  Age: 66 Year
  Sex: Female
  Weight: 62.25 kg

DRUGS (2)
  1. MYFORTIC [Suspect]
     Active Substance: MYCOPHENOLATE SODIUM
     Dosage: 2 DF, QD (DOSE OF 360, ONE TABLET IN THE MORNING AND ONE TABLET IN THE EVENING)
     Route: 048
     Dates: start: 20200802, end: 20200824
  2. MYFORTIC [Suspect]
     Active Substance: MYCOPHENOLATE SODIUM
     Indication: KIDNEY TRANSPLANT REJECTION
     Dosage: 8 DF, QD (DOSE OF 1440, FOUR TABLETS IN THE MORNING AND FOUR TABLETS IN THE EVENING)
     Route: 048
     Dates: start: 20200227, end: 20200724

REACTIONS (1)
  - Blood disorder [Not Recovered/Not Resolved]

NARRATIVE: CASE EVENT DATE: 20200824
